FAERS Safety Report 7865196-8 (Version None)
Quarter: 2011Q4

REPORT INFORMATION
  Report Type: 
  Country: None (occurrence: None)
  Receive Date: 20111028
  Receipt Date: 20101029
  Transmission Date: 20120403
  Serious: No
  Sender: FDA-Public Use
  Company Number: US-GLAXOSMITHKLINE-A0889709A

PATIENT
  Age: 72 Year
  Sex: Female

DRUGS (8)
  1. PULMICORT [Suspect]
     Indication: PRODUCT USED FOR UNKNOWN INDICATION
  2. ZOCOR [Concomitant]
  3. TOPROL-XL [Concomitant]
  4. ALBUTEROL [Concomitant]
  5. ANTIBIOTIC [Concomitant]
  6. ADVAIR DISKUS 100/50 [Suspect]
     Indication: PRODUCT USED FOR UNKNOWN INDICATION
     Dosage: 1PUFF TWICE PER DAY
     Route: 055
     Dates: start: 20090201
  7. AMBIEN [Concomitant]
  8. PREDNISONE [Concomitant]

REACTIONS (3)
  - ABDOMINAL DISCOMFORT [None]
  - VISUAL ACUITY REDUCED [None]
  - DRUG INEFFECTIVE [None]
